FAERS Safety Report 5289158-2 (Version None)
Quarter: 2007Q1

REPORT INFORMATION
  Report Type: 
  Country: None (occurrence: None)
  Receive Date: 20070124
  Receipt Date: 20060823
  Transmission Date: 20070707
  Serious: Yes (Hospitalization)
  Sender: FDA-Public Use
  Company Number: E2020-00398-SPO-US

PATIENT
  Age: 81 Year
  Sex: Male
  Weight: 50.9 kg

DRUGS (9)
  1. ARICEPT [Suspect]
     Indication: DEMENTIA ALZHEIMER'S TYPE
     Dosage: SEE IMAGE
     Route: 048
     Dates: start: 20060101
  2. NEURONTIN [Suspect]
     Indication: DEMENTIA ALZHEIMER'S TYPE
     Dosage: SEE IMAGE
     Route: 048
     Dates: start: 20060319, end: 20060320
  3. NEURONTIN [Suspect]
     Indication: DEMENTIA ALZHEIMER'S TYPE
     Dosage: SEE IMAGE
     Route: 048
     Dates: start: 20060317
  4. NEURONTIN [Suspect]
     Indication: DEMENTIA ALZHEIMER'S TYPE
     Dosage: SEE IMAGE
     Route: 048
     Dates: start: 20060812
  5. TRAVOPROST [Concomitant]
  6. PLAVIX [Concomitant]
  7. ASPIRIN [Concomitant]
  8. TRAVATAN [Concomitant]
  9. DILTIAZEM [Concomitant]

REACTIONS (4)
  - AGGRESSION [None]
  - CEREBROVASCULAR ACCIDENT [None]
  - FEELING ABNORMAL [None]
  - TRANSIENT ISCHAEMIC ATTACK [None]
